FAERS Safety Report 4512524-7 (Version None)
Quarter: 2004Q4

REPORT INFORMATION
  Report Type: 
  Country: None (occurrence: None)
  Receive Date: 20041008
  Receipt Date: 20040908
  Transmission Date: 20050328
  Serious: Yes (Other)
  Sender: FDA-Public Use
  Company Number: 380064

PATIENT
  Sex: Female

DRUGS (1)
  1. FUZEON [Suspect]
     Indication: DRUG USE FOR UNKNOWN INDICATION
     Dosage: TOPICAL
     Route: 061

REACTIONS (3)
  - ACCIDENTAL EXPOSURE [None]
  - HYPERSENSITIVITY [None]
  - RASH [None]
